FAERS Safety Report 19972970 (Version 2)
Quarter: 2021Q4

REPORT INFORMATION
  Report Type: Spontaneous
  Country: US (occurrence: US)
  Receive Date: 20211019
  Receipt Date: 20211118
  Transmission Date: 20220303
  Serious: Yes (Hospitalization, Other)
  Sender: FDA-Public Use
  Company Number: US-009507513-2109USA003233

PATIENT
  Sex: Male
  Weight: 107.03 kg

DRUGS (18)
  1. VERQUVO [Suspect]
     Active Substance: VERICIGUAT
     Indication: Cardiac failure
     Dosage: 10MG PO ONCE DAILY
     Route: 048
     Dates: start: 20210716, end: 20210722
  2. TRAZODONE [Suspect]
     Active Substance: TRAZODONE HYDROCHLORIDE
     Indication: Insomnia
     Dosage: 50 MG/ 1 TABLET AT BEDTIME
     Route: 048
     Dates: start: 20210724
  3. ALPRAZOLAM [Concomitant]
     Active Substance: ALPRAZOLAM
     Dosage: TAKE 1 TABLET 3 TIMES DAILY AS NEEDED
     Route: 048
     Dates: start: 20170824
  4. ASPIRIN [Concomitant]
     Active Substance: ASPIRIN
     Dosage: 1 TABLET DAILY
     Route: 048
  5. CYCLOBENZAPRINE [Concomitant]
     Active Substance: CYCLOBENZAPRINE
     Dosage: 1 TABLET 3 TIMES DAILY AS NEEDED
     Route: 048
  6. ENTRESTO [Concomitant]
     Active Substance: SACUBITRIL\VALSARTAN
     Dosage: 1 TABLET BY MOUTH TWICE DAILY
     Route: 048
     Dates: start: 20180810
  7. LASIX [Concomitant]
     Active Substance: FUROSEMIDE
     Dosage: 1 TABLET TWICE A DAY
     Dates: start: 20190422
  8. GARLICAPS [Concomitant]
     Dosage: 1 CAPSULE DAILY
  9. CHONDROITIN;GLUCOSAMINE [Concomitant]
     Dosage: USE AS DIRECTED
  10. IRON [Concomitant]
     Active Substance: IRON
     Dosage: 1 TABLET TWICE A DAILY AS DIRECTED
  11. MECLIZINE [Concomitant]
     Active Substance: MECLIZINE HYDROCHLORIDE
     Indication: Dizziness
     Dosage: 1 TABLET EVERY 6 HOUS AS NEEDED
  12. VITAMINS [Concomitant]
     Active Substance: VITAMINS
     Dosage: 1 TABLET DAILY
  13. NITROSTAT [Concomitant]
     Active Substance: NITROGLYCERIN
     Indication: Chest pain
     Dosage: DISSOLVE 1 TABLET UNDER THE TONGUE AS NEEDED
     Route: 060
     Dates: start: 20160311
  14. RABEPRAZOLE SODIUM [Concomitant]
     Active Substance: RABEPRAZOLE SODIUM
     Dosage: 1 TABLET TWICE A DAY
     Route: 048
     Dates: start: 20210521
  15. CRESTOR [Concomitant]
     Active Substance: ROSUVASTATIN CALCIUM
     Dosage: 1 TABLET DAILY
     Dates: start: 20200313
  16. CIALIS [Concomitant]
     Active Substance: TADALAFIL
     Dosage: 1 TABLET 1 HOUR BEFORE ACTIVITY AS NEEDED
     Dates: start: 20180412
  17. VITAMIN C [Concomitant]
     Active Substance: ASCORBIC ACID
     Dosage: 1 TABLET DAILY
  18. VITAMIN D3 [Concomitant]
     Active Substance: CHOLECALCIFEROL
     Dosage: 25 MCG (1000 UT)/ 1 TABLET DAILY
     Dates: start: 20200420

REACTIONS (7)
  - Anxiety [Recovered/Resolved]
  - Panic attack [Recovered/Resolved]
  - Insomnia [Recovered/Resolved]
  - Hallucination [Recovered/Resolved]
  - Disturbance in attention [Recovered/Resolved]
  - Dyspnoea [Recovered/Resolved]
  - Drug ineffective [Unknown]

NARRATIVE: CASE EVENT DATE: 20210101
